FAERS Safety Report 10853673 (Version 10)
Quarter: 2020Q4

REPORT INFORMATION
  Report Type: Spontaneous
  Country: US (occurrence: US)
  Receive Date: 20150223
  Receipt Date: 20201029
  Transmission Date: 20210113
  Serious: Yes (Other)
  Sender: FDA-Public Use
  Company Number: US-PFIZER INC-2015066233

PATIENT
  Age: 70 Year
  Sex: Male
  Weight: 122 kg

DRUGS (36)
  1. LYRICA [Suspect]
     Active Substance: PREGABALIN
     Indication: DIABETIC NEUROPATHY
     Dosage: 200 MG, 3X/DAY (1 PO Q8)
     Route: 048
  2. ASPIRIN. [Concomitant]
     Active Substance: ASPIRIN
     Indication: CEREBROVASCULAR ACCIDENT PROPHYLAXIS
     Dosage: 325 MG, 1X/DAY
     Route: 048
     Dates: start: 2006
  3. FISH OIL [Concomitant]
     Active Substance: FISH OIL
     Indication: GOUT
     Dosage: UNK, 2X/DAY
     Route: 048
  4. FIBER [Concomitant]
     Active Substance: PSYLLIUM HUSK
     Dosage: 0.52 MG, 2X/DAY
     Route: 048
  5. POTASSIUM CITRATE. [Concomitant]
     Active Substance: POTASSIUM CITRATE
     Indication: RENAL LITHIASIS PROPHYLAXIS
     Dosage: 1080 MG, 2X/DAY
     Route: 048
  6. CENTRUM [Concomitant]
     Active Substance: VITAMINS
     Dosage: UNK, 2X/DAY
  7. LYRICA [Suspect]
     Active Substance: PREGABALIN
     Dosage: 150 MG, 3X/DAY
  8. CALCIUM VITAMIN D [Concomitant]
     Active Substance: CALCIUM\VITAMIN D
     Dosage: 650 MG, 1X/DAY
     Route: 048
  9. HYDROCHLOROTHIAZIDE. [Concomitant]
     Active Substance: HYDROCHLOROTHIAZIDE
     Indication: NEPHROLITHIASIS
     Dosage: 25 MG, 2X/DAY
  10. HYDROCHLOROTHIAZIDE. [Concomitant]
     Active Substance: HYDROCHLOROTHIAZIDE
     Dosage: 25 MOL, 2X/DAY
     Dates: start: 2006
  11. ALLOPURINOL. [Concomitant]
     Active Substance: ALLOPURINOL
     Indication: GOUT
     Dosage: 100 MG, 1X/DAY
     Route: 048
  12. TAMSULOSIN [Concomitant]
     Active Substance: TAMSULOSIN
     Indication: BLADDER DISORDER
     Dosage: 0.4 MG, 1X/DAY (AT NIGHT)
     Route: 048
  13. ASPIRIN. [Concomitant]
     Active Substance: ASPIRIN
     Indication: CEREBROVASCULAR ACCIDENT
     Dosage: 325 MG, 1X/DAY AT NIGHT
     Route: 048
  14. GREEN TEA EXTRACT [Concomitant]
     Dosage: 340 MG, 2X/DAY
     Route: 048
  15. BENAZEPRIL [Concomitant]
     Active Substance: BENAZEPRIL HYDROCHLORIDE
     Dosage: 20 MG, UNK
     Dates: start: 2015
  16. DONEPEZIL. [Concomitant]
     Active Substance: DONEPEZIL
     Dosage: 10 MG, 1X/DAY (AT NIGHT)
  17. GLIMEPIRIDE. [Concomitant]
     Active Substance: GLIMEPIRIDE
     Dosage: 400 MG, 2X/DAY
     Route: 048
     Dates: start: 2006
  18. GLIMEPIRIDE. [Concomitant]
     Active Substance: GLIMEPIRIDE
     Dosage: 4 MG, DAILY
     Route: 048
  19. NORTRIPTYLINE [Concomitant]
     Active Substance: NORTRIPTYLINE
     Indication: NEUROPATHY PERIPHERAL
     Dosage: 25 MG, 1X/DAY(AT NIGHT)
  20. NORTRIPTYLINE [Concomitant]
     Active Substance: NORTRIPTYLINE
     Dosage: 20 MG, UNK
     Dates: start: 2015
  21. VITAMIN B12 [Concomitant]
     Active Substance: CYANOCOBALAMIN
     Indication: IMMUNE SYSTEM DISORDER
     Dosage: 2500 UG, 1X/DAY
     Route: 048
  22. FIBER [Concomitant]
     Active Substance: PSYLLIUM HUSK
     Indication: BOWEL MOVEMENT IRREGULARITY
     Dosage: 0.52 G, 2X/DAY
     Route: 048
  23. LEVOTHYROXIN [Concomitant]
     Active Substance: LEVOTHYROXINE
     Indication: THYROID DISORDER
     Dosage: 150 UG, 1X/DAY AT NIGHT
     Route: 048
     Dates: start: 1985
  24. FISH OIL [Concomitant]
     Active Substance: FISH OIL
     Indication: CEREBROVASCULAR ACCIDENT
     Dosage: 1200 MG, 3X/DAY
     Route: 048
  25. LYRICA [Suspect]
     Active Substance: PREGABALIN
     Indication: NEUROPATHY PERIPHERAL
     Dosage: 150 MG, 2X/DAY
     Route: 048
     Dates: start: 2014
  26. TAMSULOSIN [Concomitant]
     Active Substance: TAMSULOSIN
     Indication: DYSURIA
     Dosage: 0.4 MG, UNK (XL)
     Route: 048
     Dates: start: 2006
  27. GEMFIBROZIL. [Concomitant]
     Active Substance: GEMFIBROZIL
     Indication: BLOOD CHOLESTEROL ABNORMAL
     Dosage: 600 MG, 2X/DAY
     Route: 048
  28. GEMFIBROZIL. [Concomitant]
     Active Substance: GEMFIBROZIL
     Dosage: 400 MG, 1X/DAY
     Route: 048
     Dates: start: 2006
  29. GLIMEPIRIDE. [Concomitant]
     Active Substance: GLIMEPIRIDE
     Indication: DIABETES MELLITUS
     Dosage: 4 MG, 2X/DAY
     Route: 048
  30. D-3 [Concomitant]
     Active Substance: CHOLECALCIFEROL
     Indication: IMMUNE SYSTEM DISORDER
     Dosage: 2000 IU, UNK
  31. VITAMIN B12 [Concomitant]
     Active Substance: CYANOCOBALAMIN
     Dosage: 150 MG, 2X/DAY
     Route: 048
  32. CENTRUM [Concomitant]
     Active Substance: VITAMINS
     Indication: SUPPLEMENTATION THERAPY
     Dosage: 1 DF, DAILY
  33. ASPIRIN. [Concomitant]
     Active Substance: ASPIRIN
     Dosage: 181 MG, 1X/DAY
  34. GREEN TEA EXTRACT [Concomitant]
     Indication: BLOOD CHOLESTEROL ABNORMAL
     Dosage: 630 MG, 1X/DAY
     Route: 048
  35. CAYENNE PEPPER [Concomitant]
     Active Substance: CAPSICUM
     Indication: BLOOD DISORDER
     Dosage: UNK, 2X/DAY, (40,000 STUS CAPSULES)
     Route: 048
  36. CAYENNE PEPPER [Concomitant]
     Active Substance: CAPSICUM
     Indication: COAGULOPATHY

REACTIONS (15)
  - Decreased appetite [Unknown]
  - Asthenia [Unknown]
  - Tinnitus [Unknown]
  - Nephrolithiasis [Recovered/Resolved]
  - Hypoaesthesia [Unknown]
  - Pain [Unknown]
  - Tremor [Not Recovered/Not Resolved]
  - Memory impairment [Recovered/Resolved]
  - CSF test abnormal [Unknown]
  - Condition aggravated [Not Recovered/Not Resolved]
  - Neuropathy peripheral [Not Recovered/Not Resolved]
  - Insomnia [Unknown]
  - Hypoacusis [Unknown]
  - Dysphagia [Unknown]
  - Paraesthesia [Unknown]

NARRATIVE: CASE EVENT DATE: 2016
